FAERS Safety Report 17712769 (Version 1)
Quarter: 2020Q2

REPORT INFORMATION
  Report Type: Spontaneous
  Country: TW (occurrence: TW)
  Receive Date: 20200427
  Receipt Date: 20200427
  Transmission Date: 20200714
  Serious: Yes (Other)
  Sender: FDA-Public Use
  Company Number: NVSC2020TW109163

PATIENT
  Age: 29 Year
  Sex: Male

DRUGS (6)
  1. DEXAMETHASONE. [Suspect]
     Active Substance: DEXAMETHASONE
     Indication: ANGIOCENTRIC LYMPHOMA
     Dosage: 40 MG, DAYS 1?4;
     Route: 065
     Dates: start: 201703
  2. L-ASPARAGINASE [Suspect]
     Active Substance: ASPARAGINASE
     Indication: ANGIOCENTRIC LYMPHOMA
     Dosage: 6000 UNK, U/M2 ON DAYS 8, 10, 12, 14, 16, 18, AND 20
     Route: 065
     Dates: start: 201703
  3. METHOTREXATE. [Suspect]
     Active Substance: METHOTREXATE
     Indication: ANGIOCENTRIC LYMPHOMA
     Dosage: 2000 MG/M2, ON DAY 1
     Route: 065
     Dates: start: 201703
  4. ETOPOSIDE. [Suspect]
     Active Substance: ETOPOSIDE
     Indication: ANGIOCENTRIC LYMPHOMA
     Dosage: 100 MG/M2, ON DAYS 2-4
     Route: 065
     Dates: start: 201703
  5. IFOSFAMIDE. [Suspect]
     Active Substance: IFOSFAMIDE
     Indication: ANGIOCENTRIC LYMPHOMA
     Dosage: 1500 MG/M2, ON DAYS 1?3
     Route: 065
     Dates: start: 201703
  6. MESNA. [Suspect]
     Active Substance: MESNA
     Indication: ANGIOCENTRIC LYMPHOMA
     Dosage: 900 MG/M2, ON DAYS 2?4
     Route: 065
     Dates: start: 201703

REACTIONS (3)
  - Epstein-Barr virus infection reactivation [Unknown]
  - Angiocentric lymphoma [Unknown]
  - Product use in unapproved indication [Unknown]
